FAERS Safety Report 8397216-9 (Version None)
Quarter: 2012Q2

REPORT INFORMATION
  Report Type: 
  Country: None (occurrence: None)
  Receive Date: 20120530
  Receipt Date: 20120521
  Transmission Date: 20120825
  Serious: Yes (Death)
  Sender: FDA-Public Use
  Company Number: FR-VALEANT-2012VX002368

PATIENT

DRUGS (2)
  1. THERAPEUTIC RADIOPHARMACEUTICALS [Suspect]
     Route: 065
  2. FLUOROURACIL [Suspect]
     Route: 042

REACTIONS (1)
  - MYOCARDIAL INFARCTION [None]
